FAERS Safety Report 6933097-5 (Version None)
Quarter: 2010Q3

REPORT INFORMATION
  Report Type: 
  Country: None (occurrence: None)
  Receive Date: 20100817
  Receipt Date: 20100802
  Transmission Date: 20110219
  Serious: Yes (Death, Hospitalization)
  Sender: FDA-Public Use
  Company Number: 2010P1000576

PATIENT
  Age: 6 Year
  Sex: Female
  Weight: 14.9687 kg

DRUGS (4)
  1. BUPHENYL [Suspect]
     Indication: AMINO ACID METABOLISM DISORDER
     Dosage: 7 G; QD; PO
     Route: 048
     Dates: start: 20040101
  2. CYCLINEX [Concomitant]
  3. L-ARGININE [Concomitant]
  4. PRO-PHREE [Concomitant]

REACTIONS (8)
  - ATAXIA [None]
  - BRAIN OEDEMA [None]
  - DIALYSIS [None]
  - DISORIENTATION [None]
  - HYPERAMMONAEMIA [None]
  - LIFE SUPPORT [None]
  - PRODUCT QUALITY ISSUE [None]
  - VOMITING [None]
